FAERS Safety Report 6959516-6 (Version None)
Quarter: 2010Q3

REPORT INFORMATION
  Report Type: 
  Country: None (occurrence: None)
  Receive Date: 20100831
  Receipt Date: 20100830
  Transmission Date: 20110219
  Serious: Yes (Other)
  Sender: FDA-Public Use
  Company Number: US-BRISTOL-MYERS SQUIBB COMPANY-15260151

PATIENT
  Age: 35 Year
  Sex: Male

DRUGS (4)
  1. ABILIFY [Suspect]
     Dosage: 20MG IN THE MORNING.DOSE INCREASED TO 30MG DAILY THEN HAD TAKEN 40MG.
  2. LEXAPRO [Concomitant]
  3. METFORMIN HCL [Concomitant]
  4. KLONOPIN [Concomitant]

REACTIONS (9)
  - CHEST DISCOMFORT [None]
  - COLD SWEAT [None]
  - DIABETES MELLITUS [None]
  - ERYTHEMA [None]
  - HEADACHE [None]
  - MANIA [None]
  - OVERDOSE [None]
  - SOMNOLENCE [None]
  - WEIGHT INCREASED [None]
